FAERS Safety Report 10478515 (Version 1)
Quarter: 2014Q3

REPORT INFORMATION
  Report Type: Spontaneous
  Country: US (occurrence: None)
  Receive Date: 20140925
  Receipt Date: 20140925
  Transmission Date: 20150326
  Serious: No
  Sender: FDA-Public Use
  Company Number: None

PATIENT
  Age: 44 Year
  Sex: Female
  Weight: 56.7 kg

DRUGS (1)
  1. APRISO [Suspect]
     Active Substance: MESALAMINE
     Dosage: 4 PILLS ?ONCE DAILY?TAKEN BY MOUTH
     Route: 048
     Dates: start: 20140801, end: 20140924

REACTIONS (2)
  - Sleep disorder [None]
  - Alopecia [None]
